FAERS Safety Report 14812749 (Version 5)
Quarter: 2018Q2

REPORT INFORMATION
  Report Type: Report from Study
  Country: None (occurrence: AU)
  Receive Date: 20180426
  Receipt Date: 20180611
  Transmission Date: 20180711
  Serious: Yes (Life-Threatening, Hospitalization, Other)
  Sender: FDA-Public Use
  Company Number: AU-ABBVIE-18K-008-2332785-00

PATIENT
  Age: 62 Year
  Sex: Male
  Weight: 79 kg

DRUGS (7)
  1. MICARDIS [Concomitant]
     Active Substance: TELMISARTAN
     Indication: HYPERTENSION
     Route: 048
     Dates: start: 20131009
  2. DUODOPA [Suspect]
     Active Substance: CARBIDOPA\LEVODOPA
     Dosage: 16 HR TX, MD: 8 ML, CD: 3.8 ML/H, ED: 1 ML, 1X/D
     Route: 050
     Dates: start: 20171120
  3. OSTELIN VITAMIN D [Concomitant]
     Active Substance: CHOLECALCIFEROL
     Indication: VITAMIN D DECREASED
     Route: 048
     Dates: start: 20171115
  4. SIFROL [Concomitant]
     Active Substance: PRAMIPEXOLE
     Indication: PARKINSON^S DISEASE
     Route: 048
     Dates: start: 20160523
  5. DUODOPA [Suspect]
     Active Substance: CARBIDOPA\LEVODOPA
     Indication: PARKINSON^S DISEASE
     Dosage: DOSING :16 HR TX, MD: 8 ML, CD: 3.8 ML/H, ED: 1 ML, 1X/D (FLOW RATE : 4.1 ML/HR)
     Route: 050
     Dates: start: 20171114, end: 20171119
  6. AZILECT [Concomitant]
     Active Substance: RASAGILINE MESYLATE
     Indication: PARKINSON^S DISEASE
     Route: 048
     Dates: start: 20121010
  7. HYDROXOCOBALAMIN [Concomitant]
     Active Substance: HYDROXOCOBALAMIN
     Indication: VITAMIN B12 DECREASED
     Route: 030
     Dates: start: 20171115

REACTIONS (7)
  - Pain [Unknown]
  - Bezoar [Unknown]
  - Bezoar [Recovered/Resolved]
  - Abdominal pain [Recovered/Resolved]
  - Device occlusion [Unknown]
  - Small intestinal obstruction [Unknown]
  - Intussusception [Unknown]

NARRATIVE: CASE EVENT DATE: 2018
